FAERS Safety Report 12308598 (Version 1)
Quarter: 2016Q2

REPORT INFORMATION
  Report Type: Report from Study
  Country: MX (occurrence: MX)
  Receive Date: 20160427
  Receipt Date: 20160427
  Transmission Date: 20160815
  Serious: Yes (Disabling, Other)
  Sender: FDA-Public Use
  Company Number: MX-AMGEN-MEXSL2016052007

PATIENT
  Age: 68 Year
  Sex: Female
  Weight: 40 kg

DRUGS (3)
  1. NEUPOGEN [Suspect]
     Active Substance: FILGRASTIM
     Indication: NEUTROPENIA
     Dosage: 300 MUG, UNK
     Route: 065
  2. CAPECITABINE. [Concomitant]
     Active Substance: CAPECITABINE
     Indication: COLORECTAL CANCER STAGE III
     Dosage: UNK
  3. OXALIPLATIN. [Concomitant]
     Active Substance: OXALIPLATIN
     Indication: COLORECTAL CANCER STAGE III
     Dosage: UNK

REACTIONS (1)
  - Febrile neutropenia [Recovering/Resolving]

NARRATIVE: CASE EVENT DATE: 20160208
